FAERS Safety Report 24351074 (Version 1)
Quarter: 2024Q3

REPORT INFORMATION
  Report Type: Spontaneous
  Country: DE (occurrence: DE)
  Receive Date: 20240923
  Receipt Date: 20240923
  Transmission Date: 20241017
  Serious: Yes (Other)
  Sender: ROCHE
  Company Number: None

PATIENT
  Sex: Female
  Weight: 55 kg

DRUGS (11)
  1. PERJETA [Suspect]
     Active Substance: PERTUZUMAB
     Indication: Breast cancer
     Dosage: 1060 [MG/D (BIS 420) ]/ WEEK 17+2 AND WEEK 20+2
     Route: 042
     Dates: start: 20230105, end: 20230126
  2. HERCEPTIN [Suspect]
     Active Substance: TRASTUZUMAB
     Indication: Breast cancer female
     Dosage: 424 [MG/D (BIS 336) ]/ WEEK 17+2 AND WEEK 20+2
     Route: 042
     Dates: start: 20230105, end: 20230126
  3. GRANISETRON [Concomitant]
     Active Substance: GRANISETRON
     Indication: Nausea
     Route: 065
  4. CARBOPLATIN [Concomitant]
     Active Substance: CARBOPLATIN
     Indication: HER2 positive breast cancer
     Dosage: 900 [MG/D ]
     Route: 042
     Dates: start: 20230105, end: 20230105
  5. EMEND [Concomitant]
     Active Substance: APREPITANT
     Indication: Nausea
     Route: 048
  6. NEULASTA [Concomitant]
     Active Substance: PEGFILGRASTIM
     Indication: HER2 positive breast cancer
     Route: 058
  7. EPIRUBICIN [Concomitant]
     Active Substance: EPIRUBICIN
     Indication: HER2 positive breast cancer
     Dosage: 143 [MG/D ]/ WEEK 28+3, 30+3, 32+3
     Route: 042
     Dates: start: 20230324, end: 20230420
  8. FOLIC ACID [Concomitant]
     Active Substance: FOLIC ACID
     Route: 048
  9. LEVOTHYROXINE SODIUM [Concomitant]
     Active Substance: LEVOTHYROXINE SODIUM
     Indication: Hypothyroidism
     Dosage: 62.5
     Route: 048
  10. CYCLOPHOSPHAMIDE [Concomitant]
     Active Substance: CYCLOPHOSPHAMIDE
     Indication: HER2 positive breast cancer
     Dosage: 940 [MG/D ]/ WEEK 28+3, 30+3, 32+3
     Route: 042
     Dates: start: 20230324, end: 20230420
  11. DOCETAXEL [Concomitant]
     Active Substance: DOCETAXEL\DOCETAXEL ANHYDROUS
     Indication: HER2 positive breast cancer
     Dosage: 349 [MG/D (BIS 117) ]/ WEEK 17+2, 20+2, 23+2
     Route: 042
     Dates: start: 20230105, end: 20230216

REACTIONS (2)
  - Oligohydramnios [Recovering/Resolving]
  - Maternal exposure timing unspecified [Unknown]
